FAERS Safety Report 8599859-6 (Version None)
Quarter: 2012Q3

REPORT INFORMATION
  Report Type: 
  Country: None (occurrence: None)
  Receive Date: 20120816
  Receipt Date: 20120208
  Transmission Date: 20120928
  Serious: No
  Sender: FDA-Public Use
  Company Number: US-AMGEN-USASP2012008576

PATIENT
  Age: 47 Year
  Sex: Male

DRUGS (4)
  1. NPLATE [Suspect]
     Indication: IDIOPATHIC THROMBOCYTOPENIC PURPURA
     Dosage: 360 MUG, QWK
     Dates: start: 20111101
  2. NPLATE [Suspect]
     Dosage: 450 MUG, QWK
  3. ANTIHYPERTENSIVES [Concomitant]
     Dosage: UNK
  4. NPLATE [Suspect]
     Dosage: 550 MUG, QWK

REACTIONS (1)
  - MIGRAINE [None]
